FAERS Safety Report 9587702 (Version 1)
Quarter: 2013Q4

REPORT INFORMATION
  Report Type: Spontaneous
  Country: US (occurrence: US)
  Receive Date: 20131003
  Receipt Date: 20131003
  Transmission Date: 20140711
  Serious: No
  Sender: FDA-Public Use
  Company Number: US-COVIDIEN/TYCO HEALTHCARE/MALLINCKRODT-T201204246

PATIENT
  Age: 48 Year
  Sex: Female

DRUGS (7)
  1. EXALGO EXTENDED RELEASE [Suspect]
     Dosage: 16 MG AT 1200; 16 MG AT 1800
     Dates: start: 20121003, end: 20121003
  2. EXALGO EXTENDED RELEASE [Suspect]
     Dosage: 16 MG Q 12 HOURS
     Dates: start: 201204
  3. PREGABALIN [Concomitant]
     Dosage: UNK
  4. TIZANIDINE [Concomitant]
     Dosage: UNK
  5. SIMVASTATIN [Concomitant]
     Dosage: UNK
  6. OMEPRAZOLE [Concomitant]
     Dosage: UNK
  7. OXYCONTIN [Concomitant]
     Dosage: UNK

REACTIONS (1)
  - Inappropriate schedule of drug administration [Unknown]
